FAERS Safety Report 4885882-1 (Version None)
Quarter: 2006Q1

REPORT INFORMATION
  Report Type: 
  Country: None (occurrence: None)
  Receive Date: 20060117
  Receipt Date: 20060103
  Transmission Date: 20060701
  Serious: Yes (Hospitalization)
  Sender: FDA-Public Use
  Company Number: 2006004848

PATIENT
  Age: 43 Year
  Sex: Female

DRUGS (1)
  1. BEXTRA [Suspect]
     Indication: ABDOMINAL PAIN
     Dosage: 40 MG (40 MG, 1 IN 1 D), ORAL
     Route: 048
     Dates: start: 20050301, end: 20050301

REACTIONS (3)
  - CROHN'S DISEASE [None]
  - GASTROINTESTINAL DISORDER [None]
  - VOMITING [None]
